FAERS Safety Report 15095861 (Version 1)
Quarter: 2018Q3

REPORT INFORMATION
  Report Type: Spontaneous
  Country: IT (occurrence: IT)
  Receive Date: 20180702
  Receipt Date: 20180702
  Transmission Date: 20181010
  Serious: Yes (Hospitalization)
  Sender: FDA-Public Use
  Company Number: IT-FRESENIUS KABI-FK201807326

PATIENT
  Age: 87 Year
  Sex: Female

DRUGS (3)
  1. KETOROLAC TROMETHAMINE INJECTION (MANUFACTURER UNKNOWN) [Suspect]
     Active Substance: KETOROLAC TROMETHAMINE
     Indication: ANALGESIC THERAPY
     Route: 065
  2. ACETAMINOPHEN INJECTION [Suspect]
     Active Substance: ACETAMINOPHEN
     Indication: ANALGESIC THERAPY
     Route: 065
  3. ANESTHETICS [Suspect]
     Active Substance: UNSPECIFIED INGREDIENT
     Indication: GENERAL ANAESTHESIA

REACTIONS (1)
  - Metabolic acidosis [Unknown]
